FAERS Safety Report 17884997 (Version 2)
Quarter: 2020Q2

REPORT INFORMATION
  Report Type: Report from Study
  Country: JP (occurrence: JP)
  Receive Date: 20200611
  Receipt Date: 20200615
  Transmission Date: 20200714
  Serious: Yes (Hospitalization)
  Sender: FDA-Public Use
  Company Number: JP-SA-2020SA143258

PATIENT

DRUGS (21)
  1. ISATUXIMAB [Suspect]
     Active Substance: ISATUXIMAB
     Indication: PLASMA CELL MYELOMA
     Dosage: 10 MG/KG, I.V., C1: DAYS 1, 8, 15, 22, 29; C2-4: DAYS 1, 15, 29; C5 AND THEREAFTER: DAYS 1, 15
     Route: 041
     Dates: start: 20190205
  2. DEXAMETHASONE. [Suspect]
     Active Substance: DEXAMETHASONE
     Indication: PLASMA CELL MYELOMA
     Dosage: 20 MG/DAY, I.V., ON ISATUXIMAB ADMINISTRATION DAY
     Route: 041
     Dates: start: 20190205, end: 20200114
  3. DEXAMETHASONE. [Suspect]
     Active Substance: DEXAMETHASONE
     Dosage: 12 MG/DAY, I.V., ON ISATUXIMAB ADMINISTRATION DAY
     Route: 041
     Dates: start: 20200121, end: 20200211
  4. DEXAMETHASONE. [Suspect]
     Active Substance: DEXAMETHASONE
     Dosage: 8 MG/DAY, I.V., ON ISATUXIMAB ADMINISTRATION DAY
     Route: 041
     Dates: start: 20200218
  5. DEXAMETHASONE. [Suspect]
     Active Substance: DEXAMETHASONE
     Dosage: 8 MG/DAY, P.O., OTHER THAN ISATUXIMAB ADMINISTRATION DAY
     Route: 048
     Dates: start: 20200218
  6. LEVOFLOXACIN HEMIHYDRATE [Concomitant]
     Active Substance: LEVOFLOXACIN
     Indication: INFECTION PROPHYLAXIS
     Dosage: 500 MG, QD
     Route: 048
     Dates: start: 20190205, end: 20200603
  7. NEOSTELIN GREEN [Concomitant]
     Active Substance: BENZETHONIUM CHLORIDE
     Indication: PROPHYLAXIS
     Dosage: APPROPRIATE AMOUNT, QID
     Route: 049
     Dates: start: 20190219
  8. FAMOTIDINE. [Concomitant]
     Active Substance: FAMOTIDINE
     Indication: PROPHYLAXIS
     Dosage: 20 MG, QOW
     Route: 042
     Dates: start: 20190820, end: 20200526
  9. LENALIDOMIDE [Suspect]
     Active Substance: LENALIDOMIDE
     Indication: PLASMA CELL MYELOMA
     Dosage: 25 MG/DAY, P.O., C1-4: DAYS 1-21, 22-35; C5 AND THEREAFTER: DAYS 1-21
     Route: 048
     Dates: start: 20190205, end: 20200527
  10. VICCLOX [ACICLOVIR] [Concomitant]
     Active Substance: ACYCLOVIR
     Indication: ANTIVIRAL PROPHYLAXIS
     Dosage: 200 MG, QD
     Route: 048
     Dates: start: 20190205
  11. POLARAMINE [Concomitant]
     Active Substance: DEXCHLORPHENIRAMINE MALEATE
     Dosage: 10 MG, QOW
     Route: 042
     Dates: start: 20200121, end: 20200526
  12. BORTEZOMIB. [Suspect]
     Active Substance: BORTEZOMIB
     Indication: PLASMA CELL MYELOMA
     Dosage: 1.3 MG/M2, S.C., DAYS 1, 4, 8, 11, 22, 25, 29, 32
     Route: 058
     Dates: start: 20190205, end: 20190726
  13. LEVOFLOXACIN HEMIHYDRATE [Concomitant]
     Active Substance: LEVOFLOXACIN
     Dosage: 500 MG, QD
     Route: 048
     Dates: start: 20200606
  14. POLARAMINE [Concomitant]
     Active Substance: DEXCHLORPHENIRAMINE MALEATE
     Indication: PROPHYLAXIS
     Dosage: 5 MG, QOW
     Route: 042
     Dates: start: 20190820, end: 20191210
  15. DEXAMETHASONE. [Suspect]
     Active Substance: DEXAMETHASONE
     Dosage: 20 MG/DAY, P.O., OTHER THAN ISATUXIMAB ADMINISTRATION DAY
     Route: 048
     Dates: start: 20190205, end: 20200114
  16. DEXAMETHASONE. [Suspect]
     Active Substance: DEXAMETHASONE
     Dosage: 12 MG/DAY, P.O., OTHER THAN ISATUXIMAB ADMINISTRATION DAY
     Route: 048
     Dates: start: 20200121, end: 20200211
  17. MAGNESIUM OXIDE. [Concomitant]
     Active Substance: MAGNESIUM OXIDE
     Indication: CONSTIPATION
     Dosage: 1500 MG, TID
     Route: 048
     Dates: start: 20190219
  18. KARY UNI [Concomitant]
     Active Substance: PIRENOXINE
     Indication: CATARACT
     Dosage: APPROPRIATE AMOUNT, QID
     Route: 047
  19. CALONAL [Concomitant]
     Active Substance: ACETAMINOPHEN
     Indication: PROPHYLAXIS
     Dosage: 800 MG, QOW
     Route: 048
     Dates: start: 20190820, end: 20200526
  20. POLARAMINE [Concomitant]
     Active Substance: DEXCHLORPHENIRAMINE MALEATE
     Dosage: 10 MG, 1X
     Route: 042
     Dates: start: 20191224, end: 20191224
  21. POLARAMINE [Concomitant]
     Active Substance: DEXCHLORPHENIRAMINE MALEATE
     Dosage: 5 MG, 1X
     Route: 042
     Dates: start: 20200107, end: 20200107

REACTIONS (1)
  - Cataract [Recovered/Resolved]

NARRATIVE: CASE EVENT DATE: 20191114
